FAERS Safety Report 17037881 (Version 1)
Quarter: 2019Q4

REPORT INFORMATION
  Report Type: Report from Study
  Country: KR (occurrence: KR)
  Receive Date: 20191115
  Receipt Date: 20191115
  Transmission Date: 20200122
  Serious: Yes (Hospitalization)
  Sender: FDA-Public Use
  Company Number: KR-EISAI MEDICAL RESEARCH-EC-2019-065189

PATIENT
  Age: 54 Year
  Sex: Male
  Weight: 44.1 kg

DRUGS (9)
  1. LENVIMA [Suspect]
     Active Substance: LENVATINIB
     Indication: HEPATOCELLULAR CARCINOMA
     Route: 048
     Dates: start: 20191008, end: 20191110
  2. SMECTA SUSP [Concomitant]
  3. GODEX CAP [Concomitant]
  4. GASTER D TAB [Concomitant]
  5. MEGESTROL ACETATE DAEWON SUSPENSION [Concomitant]
  6. IRCODON TAB [Concomitant]
  7. VIREAD TAB [Concomitant]
  8. HANMI UREA CREAM [Concomitant]
  9. LIVACT GRAN [Concomitant]

REACTIONS (1)
  - International normalised ratio increased [Recovering/Resolving]

NARRATIVE: CASE EVENT DATE: 20191111
